FAERS Safety Report 7574395-4 (Version None)
Quarter: 2011Q2

REPORT INFORMATION
  Report Type: 
  Country: None (occurrence: None)
  Receive Date: 20110627
  Receipt Date: 20110616
  Transmission Date: 20111010
  Serious: Yes (Hospitalization)
  Sender: FDA-Public Use
  Company Number: SE-ASTRAZENECA-2007SE03048

PATIENT
  Age: 75 Year
  Sex: Female

DRUGS (5)
  1. LITHIONIT [Interacting]
     Dosage: DOSAGE HALFED
     Route: 048
  2. LITHIONIT [Interacting]
     Indication: DEPRESSION
     Route: 048
     Dates: start: 19950101, end: 20070320
  3. ATACAND [Suspect]
     Indication: HYPERTENSION
     Dosage: DAILY
     Route: 048
     Dates: end: 20070320
  4. SALURES [Interacting]
     Indication: HYPERTENSION
     Route: 048
     Dates: end: 20070320
  5. ASPIRIN [Concomitant]

REACTIONS (5)
  - ELECTROCARDIOGRAM T WAVE INVERSION [None]
  - ANTIPSYCHOTIC DRUG LEVEL INCREASED [None]
  - DIZZINESS [None]
  - COORDINATION ABNORMAL [None]
  - DRUG INTERACTION [None]
